FAERS Safety Report 23933817 (Version 1)
Quarter: 2024Q2

REPORT INFORMATION
  Report Type: Spontaneous
  Country: CN (occurrence: CN)
  Receive Date: 20240603
  Receipt Date: 20240603
  Transmission Date: 20240716
  Serious: Yes (Other)
  Sender: FDA-Public Use
  Company Number: CN-JNJFOC-20240574213

PATIENT
  Age: 17 Year
  Sex: Female
  Weight: 49 kg

DRUGS (4)
  1. RISPERDAL [Suspect]
     Active Substance: RISPERIDONE
     Indication: Acute psychosis
     Route: 048
     Dates: start: 20240312, end: 20240314
  2. RISPERDAL [Suspect]
     Active Substance: RISPERIDONE
     Route: 048
     Dates: start: 20240315, end: 20240321
  3. RISPERDAL [Suspect]
     Active Substance: RISPERIDONE
     Route: 048
     Dates: start: 20240322, end: 20240329
  4. RISPERDAL [Suspect]
     Active Substance: RISPERIDONE
     Dosage: GRADUALLY REDUCED THE DOSE OF RISPERIDONE TABLETS AND DISCONTINUED UNTIL 02-APR-2024
     Route: 048
     Dates: start: 20240330, end: 20240402

REACTIONS (1)
  - Drug-induced liver injury [Recovering/Resolving]

NARRATIVE: CASE EVENT DATE: 20240328
